FAERS Safety Report 6208206-6 (Version None)
Quarter: 2009Q2

REPORT INFORMATION
  Report Type: 
  Country: None (occurrence: None)
  Receive Date: 20090529
  Receipt Date: 20090526
  Transmission Date: 20091009
  Serious: Yes (Life-Threatening, Hospitalization)
  Sender: FDA-Public Use
  Company Number: PHHY2009JP20340

PATIENT
  Age: 19 Year
  Sex: Male

DRUGS (17)
  1. TEGRETOL [Suspect]
     Indication: CONVULSION PROPHYLAXIS
     Dosage: 300 MG BID, VIA TUBE
     Dates: end: 20090325
  2. PHENOBARBITAL TAB [Concomitant]
     Dosage: UNK
     Route: 048
     Dates: end: 20090407
  3. GASTER [Concomitant]
     Route: 048
  4. GASTER [Concomitant]
     Dosage: UNK
  5. WAKOBITAL [Concomitant]
  6. CERCINE [Concomitant]
     Dosage: UNK
     Dates: end: 20090407
  7. CYANOCOBALAMIN [Concomitant]
  8. PANVITAN [Concomitant]
     Dosage: UNK
     Dates: end: 20090407
  9. PANVITAN [Concomitant]
     Dosage: UNK
  10. MUCODYNE [Concomitant]
     Dosage: UNK
     Dates: end: 20090407
  11. MUCODYNE [Concomitant]
     Dosage: UNK
  12. ELENTAL [Concomitant]
     Dosage: UNK
     Dates: end: 20090407
  13. ELENTAL [Concomitant]
     Dosage: UNK
  14. ENSURE [Concomitant]
     Dosage: 500 ML
     Dates: end: 20090407
  15. ENSURE [Concomitant]
     Dosage: UNK
  16. LAXOBERON [Concomitant]
     Dosage: 15 DF
     Dates: end: 20090407
  17. LAXOBERON [Concomitant]
     Dosage: UNK

REACTIONS (11)
  - ACUTE HEPATIC FAILURE [None]
  - ALTERED STATE OF CONSCIOUSNESS [None]
  - DISSEMINATED INTRAVASCULAR COAGULATION [None]
  - GASTROINTESTINAL HAEMORRHAGE [None]
  - HYPOTENSION [None]
  - MALAISE [None]
  - PALLOR [None]
  - PERIPHERAL CIRCULATORY FAILURE [None]
  - PERIPHERAL COLDNESS [None]
  - PYREXIA [None]
  - RHABDOMYOLYSIS [None]
